FAERS Safety Report 5654978-9 (Version None)
Quarter: 2008Q1

REPORT INFORMATION
  Report Type: 
  Country: None (occurrence: None)
  Receive Date: 20080307
  Receipt Date: 20071022
  Transmission Date: 20080703
  Serious: No
  Sender: FDA-Public Use
  Company Number: A0686138A

PATIENT
  Age: 36 Year
  Sex: Female

DRUGS (5)
  1. REQUIP [Suspect]
     Indication: RESTLESS LEGS SYNDROME
     Dosage: 2.5MG AT NIGHT
     Route: 048
     Dates: start: 20060401, end: 20071005
  2. RISPERDAL [Concomitant]
  3. GEODON [Concomitant]
  4. CYMBALTA [Concomitant]
  5. PAROXETINE HCL [Concomitant]

REACTIONS (7)
  - ABNORMAL DREAMS [None]
  - AMNESIA [None]
  - ARTHRALGIA [None]
  - NIGHTMARE [None]
  - OBSESSIVE-COMPULSIVE DISORDER [None]
  - PARANOIA [None]
  - WEIGHT INCREASED [None]
